FAERS Safety Report 20663399 (Version 2)
Quarter: 2022Q2

REPORT INFORMATION
  Report Type: Spontaneous
  Country: JP (occurrence: JP)
  Receive Date: 20220401
  Receipt Date: 20220520
  Transmission Date: 20220720
  Serious: Yes (Hospitalization, Other)
  Sender: FDA-Public Use
  Company Number: JP-GLAXOSMITHKLINE-JP2022JPN056204

PATIENT

DRUGS (2)
  1. LAMICTAL [Suspect]
     Active Substance: LAMOTRIGINE
     Dosage: UNK
  2. OLANZAPINE [Suspect]
     Active Substance: OLANZAPINE
     Dosage: UNK

REACTIONS (23)
  - Stevens-Johnson syndrome [Recovering/Resolving]
  - Pyrexia [Unknown]
  - Oropharyngeal pain [Unknown]
  - Nausea [Unknown]
  - Headache [Unknown]
  - Taste disorder [Unknown]
  - Conjunctival hyperaemia [Recovering/Resolving]
  - Hypophagia [Unknown]
  - Eye discharge [Recovering/Resolving]
  - Lip swelling [Unknown]
  - Skin exfoliation [Unknown]
  - Lip erosion [Recovering/Resolving]
  - Mouth haemorrhage [Unknown]
  - Nasal crusting [Unknown]
  - Rhinorrhoea [Unknown]
  - Epistaxis [Unknown]
  - Nasal mucosal erosion [Recovering/Resolving]
  - Laryngeal oedema [Recovering/Resolving]
  - Pharyngeal erosion [Recovering/Resolving]
  - Lymphadenopathy [Unknown]
  - Blister [Unknown]
  - Lip scab [Recovering/Resolving]
  - Pneumonia mycoplasmal [Unknown]
